FAERS Safety Report 24011413 (Version 1)
Quarter: 2024Q2

REPORT INFORMATION
  Report Type: Report from Study
  Country: FR (occurrence: FR)
  Receive Date: 20240625
  Receipt Date: 20240625
  Transmission Date: 20240715
  Serious: Yes (Other)
  Sender: FDA-Public Use
  Company Number: FR-JNJFOC-20230421238

PATIENT
  Age: 19 Year
  Sex: Female

DRUGS (2)
  1. REMICADE [Suspect]
     Active Substance: INFLIXIMAB
     Indication: Crohn^s disease
     Route: 041
     Dates: start: 20041116, end: 20110407
  2. REMICADE [Suspect]
     Active Substance: INFLIXIMAB
     Route: 041
     Dates: start: 20110523, end: 20130913

REACTIONS (9)
  - Crohn^s disease [Recovered/Resolved]
  - Large intestinal stenosis [Not Recovered/Not Resolved]
  - Rash erythematous [Recovered/Resolved]
  - Arthralgia [Recovered/Resolved]
  - Helicobacter infection [Recovered/Resolved]
  - Hyperthermia [Recovered/Resolved]
  - Migraine [Not Recovered/Not Resolved]
  - Psoriasis [Recovered/Resolved]
  - Ligament sprain [Not Recovered/Not Resolved]

NARRATIVE: CASE EVENT DATE: 20150203
